FAERS Safety Report 17829317 (Version 1)
Quarter: 2020Q2

REPORT INFORMATION
  Report Type: Spontaneous
  Country: US (occurrence: US)
  Receive Date: 20200527
  Receipt Date: 20200527
  Transmission Date: 20200714
  Serious: No
  Sender: FDA-Public Use
  Company Number: US-UCBSA-2019019089

PATIENT
  Age: 52 Year
  Sex: Female

DRUGS (1)
  1. CIMZIA [Suspect]
     Active Substance: CERTOLIZUMAB PEGOL
     Indication: RHEUMATOID ARTHRITIS
     Dosage: 400 MILLIGRAM, EV 4 WEEKS
     Route: 058

REACTIONS (7)
  - Injection site erythema [Unknown]
  - Eye pruritus [Unknown]
  - Ocular hyperaemia [Unknown]
  - Excessive eye blinking [Unknown]
  - Vision blurred [Unknown]
  - Injection site pallor [Unknown]
  - Rash [Unknown]

NARRATIVE: CASE EVENT DATE: 201812
